FAERS Safety Report 7552501-5 (Version None)
Quarter: 2011Q2

REPORT INFORMATION
  Report Type: 
  Country: None (occurrence: None)
  Receive Date: 20110616
  Receipt Date: 20110606
  Transmission Date: 20111010
  Serious: Yes (Hospitalization, Other)
  Sender: FDA-Public Use
  Company Number: US-BAYER-201030529NA

PATIENT
  Age: 43 Year
  Sex: Female
  Weight: 65.76 kg

DRUGS (14)
  1. FLOVENT [Concomitant]
     Indication: ASTHMA
     Dosage: UNK
     Dates: start: 19950101
  2. ALBUTEROL SULFATE AUTOHALER [Concomitant]
     Indication: ASTHMA
     Dosage: 2 INHALATIONS EVERY 4-6 HOURS AS NEEDED
     Route: 055
     Dates: start: 19950101
  3. AMBIEN CR [Concomitant]
     Dosage: 12.5 MG, UNK
     Route: 048
  4. TYLENOL 1 [Concomitant]
     Dosage: 325 MG EVERY 4 HRS AS NEEDED
  5. YAZ [Suspect]
     Indication: ENDOMETRIOSIS
  6. ADVAIR DISKUS 100/50 [Concomitant]
     Indication: ASTHMA
     Dosage: UNK
     Dates: start: 19950101
  7. PROTONIX [Concomitant]
     Indication: GASTROOESOPHAGEAL REFLUX DISEASE
  8. PRILOSEC [Concomitant]
     Dosage: DAILY DOSE 20 MG
     Route: 048
  9. AEROBID [Concomitant]
     Dosage: 250 MCG/24HR, BID
  10. YAZ [Suspect]
     Indication: UTERINE LEIOMYOMA
  11. YAZ [Suspect]
     Indication: MENSTRUAL CYCLE MANAGEMENT
     Route: 048
     Dates: start: 20070501, end: 20070815
  12. YAZ [Suspect]
     Indication: ORAL CONTRACEPTION
  13. YAZ [Suspect]
     Indication: PREMENSTRUAL SYNDROME
  14. ZOFRAN [Concomitant]
     Indication: NAUSEA
     Dosage: 8 MG THREE TIMES DAILY AS NEEDED
     Route: 048

REACTIONS (4)
  - CHEST DISCOMFORT [None]
  - PULMONARY EMBOLISM [None]
  - ANXIETY [None]
  - PANIC ATTACK [None]
